FAERS Safety Report 8608839-3 (Version None)
Quarter: 2012Q3

REPORT INFORMATION
  Report Type: 
  Country: None (occurrence: None)
  Receive Date: 20120808
  Receipt Date: 20120724
  Transmission Date: 20120928
  Serious: Yes (Hospitalization)
  Sender: FDA-Public Use
  Company Number: AE-SPE-2012-005

PATIENT
  Age: 3 Year
  Sex: Male

DRUGS (1)
  1. MEIACT MS FINE GRANULES (CEFDITOREN PIVOXIL) [Suspect]
     Indication: PHARYNGITIS STREPTOCOCCAL
     Dosage: PO
     Route: 048
     Dates: start: 20120526, end: 20120530

REACTIONS (4)
  - DECREASED APPETITE [None]
  - HYPOGLYCAEMIA [None]
  - ASTHENIA [None]
  - VOMITING [None]
